FAERS Safety Report 12024847 (Version 1)
Quarter: 2016Q1

REPORT INFORMATION
  Report Type: Report from Study
  Country: US (occurrence: US)
  Receive Date: 20160206
  Receipt Date: 20160206
  Transmission Date: 20160526
  Serious: Yes (Other)
  Sender: FDA-Public Use
  Company Number: US-ABBVIE-15K-163-1482886-00

PATIENT
  Age: 39 Year
  Sex: Female

DRUGS (2)
  1. HUMIRA [Suspect]
     Active Substance: ADALIMUMAB
     Route: 065
  2. HUMIRA [Suspect]
     Active Substance: ADALIMUMAB
     Indication: CROHN^S DISEASE
     Route: 065

REACTIONS (7)
  - Drug ineffective [Unknown]
  - Arthralgia [Unknown]
  - Gallbladder operation [Unknown]
  - Crohn^s disease [Unknown]
  - Injection site pain [Recovered/Resolved with Sequelae]
  - Purulent discharge [Not Recovered/Not Resolved]
  - Incision site complication [Not Recovered/Not Resolved]

NARRATIVE: CASE EVENT DATE: 20150929
